FAERS Safety Report 18258937 (Version 3)
Quarter: 2020Q4

REPORT INFORMATION
  Report Type: Report from Study
  Country: CO (occurrence: CO)
  Receive Date: 20200911
  Receipt Date: 20201118
  Transmission Date: 20210113
  Serious: Yes (Hospitalization, Other)
  Sender: FDA-Public Use
  Company Number: CO-JNJFOC-20200904000

PATIENT
  Age: 44 Year
  Sex: Female
  Weight: 101 kg

DRUGS (1)
  1. MACITENTAN [Suspect]
     Active Substance: MACITENTAN
     Indication: PULMONARY ARTERIAL HYPERTENSION
     Route: 048
     Dates: start: 20200401

REACTIONS (6)
  - Embolism [Not Recovered/Not Resolved]
  - Choking [Unknown]
  - Overweight [Not Recovered/Not Resolved]
  - Thrombophlebitis [Unknown]
  - Suffocation feeling [Not Recovered/Not Resolved]
  - Cough [Unknown]

NARRATIVE: CASE EVENT DATE: 202008
